FAERS Safety Report 21985049 (Version 1)
Quarter: 2023Q1

REPORT INFORMATION
  Report Type: Spontaneous
  Country: CA (occurrence: CA)
  Receive Date: 20230213
  Receipt Date: 20230213
  Transmission Date: 20230418
  Serious: Yes (Hospitalization)
  Sender: FDA-Public Use
  Company Number: CA-TEVA-2023-CA-2853684

PATIENT
  Age: 92 Year
  Sex: Male

DRUGS (11)
  1. CEPHALEXIN [Suspect]
     Active Substance: CEPHALEXIN
     Indication: Cellulitis
     Dosage: 1500 MILLIGRAM DAILY;
     Route: 048
  2. CEFAZOLIN [Suspect]
     Active Substance: CEFAZOLIN
     Indication: Bacteraemia
     Dosage: 4 GRAM DAILY;
     Route: 042
  3. CEFTRIAXONE [Suspect]
     Active Substance: CEFTRIAXONE
     Indication: Bacteraemia
     Dosage: 2 GRAM DAILY;
     Route: 042
  4. PIPERACILLIN AND TAZOBACTAM [Suspect]
     Active Substance: PIPERACILLIN SODIUM\TAZOBACTAM SODIUM
     Indication: Cellulitis
     Dosage: 12 GRAM DAILY;
     Route: 042
  5. FORTAZ [Suspect]
     Active Substance: CEFTAZIDIME SODIUM
     Indication: Cellulitis
     Dosage: 4 GRAM DAILY;
     Route: 042
  6. MEROPENEM [Suspect]
     Active Substance: MEROPENEM
     Indication: Cellulitis
     Dosage: 2000 MILLIGRAM DAILY;
     Route: 042
  7. ACETAMINOPHEN [Concomitant]
     Active Substance: ACETAMINOPHEN
     Indication: Product used for unknown indication
  8. ALLOPURINOL [Concomitant]
     Active Substance: ALLOPURINOL
     Indication: Product used for unknown indication
  9. ESCITALOPRAM [Concomitant]
     Active Substance: ESCITALOPRAM OXALATE
     Indication: Product used for unknown indication
  10. PANTOPRAZOLE [Concomitant]
     Active Substance: PANTOPRAZOLE
     Indication: Product used for unknown indication
  11. SENNA [Concomitant]
     Active Substance: SENNA LEAF\SENNOSIDES\SENNOSIDES A AND B
     Indication: Product used for unknown indication

REACTIONS (1)
  - Clostridium test positive [Unknown]
